FAERS Safety Report 5237783-7 (Version None)
Quarter: 2007Q1

REPORT INFORMATION
  Report Type: 
  Country: None (occurrence: None)
  Receive Date: 20070214
  Receipt Date: 20070208
  Transmission Date: 20070707
  Serious: Yes (Other)
  Sender: FDA-Public Use
  Company Number: US-AMGEN-US208444

PATIENT
  Sex: Male
  Weight: 103.5 kg

DRUGS (4)
  1. ENBREL [Suspect]
     Indication: ANKYLOSING SPONDYLITIS
     Route: 058
     Dates: start: 20051015
  2. HYDROCHLOROTHIAZIDE [Concomitant]
  3. ATENOLOL [Concomitant]
     Dates: start: 20060601
  4. PROTONIX [Concomitant]
     Dates: start: 20060601

REACTIONS (1)
  - PROSTATE CANCER [None]
